FAERS Safety Report 9499378 (Version 1)
Quarter: 2013Q3

REPORT INFORMATION
  Report Type: Spontaneous
  Country: US (occurrence: US)
  Receive Date: 20130905
  Receipt Date: 20130905
  Transmission Date: 20140515
  Serious: No
  Sender: FDA-Public Use
  Company Number: US-009507513-1308USA014906

PATIENT
  Sex: Male

DRUGS (2)
  1. SAPHRIS [Suspect]
     Indication: BIPOLAR I DISORDER
     Dosage: 5 MG, QPM
     Route: 060
     Dates: start: 20130819, end: 20130827
  2. LAMOTRIGINE [Concomitant]

REACTIONS (1)
  - Akathisia [Recovering/Resolving]
